FAERS Safety Report 5942172-3 (Version None)
Quarter: 2008Q4

REPORT INFORMATION
  Report Type: 
  Country: None (occurrence: None)
  Receive Date: 20081031
  Receipt Date: 20081023
  Transmission Date: 20090506
  Serious: Yes (Hospitalization)
  Sender: FDA-Public Use
  Company Number: 2007SP023305

PATIENT
  Age: 54 Year
  Sex: Male

DRUGS (4)
  1. PEG-INTRON [Suspect]
     Indication: HEPATITIS C
     Dosage: SC
     Route: 058
     Dates: start: 20071101, end: 20071101
  2. PEG-INTRON [Suspect]
     Indication: HEPATITIS C
     Dosage: SC
     Route: 058
     Dates: start: 20080515
  3. REBETOL [Suspect]
     Indication: HEPATITIS C
     Dosage: PO
     Route: 048
     Dates: start: 20071101, end: 20071101
  4. REBETOL [Suspect]
     Indication: HEPATITIS C
     Dosage: PO
     Route: 048
     Dates: start: 20080515

REACTIONS (4)
  - BLOOD COUNT ABNORMAL [None]
  - HAEMOGLOBIN DECREASED [None]
  - OESOPHAGEAL VARICES HAEMORRHAGE [None]
  - RED BLOOD CELL COUNT DECREASED [None]
